FAERS Safety Report 25498019 (Version 1)
Quarter: 2025Q3

REPORT INFORMATION
  Report Type: Spontaneous
  Country: US (occurrence: US)
  Receive Date: 20250701
  Receipt Date: 20250701
  Transmission Date: 20251021
  Serious: Yes (Death, Hospitalization, Other)
  Sender: HIKMA
  Company Number: US-HIKMA PHARMACEUTICALS USA INC.-US-H14001-25-07941

PATIENT
  Age: 19 Year
  Sex: Female

DRUGS (5)
  1. LORAZEPAM [Suspect]
     Active Substance: LORAZEPAM
     Indication: Tachypnoea
     Route: 065
  2. LORAZEPAM [Suspect]
     Active Substance: LORAZEPAM
     Indication: Sedative therapy
  3. MORPHINE [Suspect]
     Active Substance: MORPHINE
     Indication: Tachypnoea
     Route: 065
  4. MORPHINE [Suspect]
     Active Substance: MORPHINE
     Indication: Sedative therapy
  5. PRECEDEX [Concomitant]
     Active Substance: DEXMEDETOMIDINE HYDROCHLORIDE
     Indication: Tachypnoea
     Route: 065

REACTIONS (2)
  - COVID-19 [Fatal]
  - Respiratory distress [Fatal]
